FAERS Safety Report 9124741 (Version 8)
Quarter: 2017Q2

REPORT INFORMATION
  Report Type: Spontaneous
  Country: US (occurrence: US)
  Receive Date: 20130116
  Receipt Date: 20170427
  Transmission Date: 20170830
  Serious: Yes (Disabling, Other)
  Sender: FDA-Public Use
  Company Number: US-BAYER-2013-004932

PATIENT
  Age: 34 Year
  Sex: Female
  Weight: 65.31 kg

DRUGS (19)
  1. CIPRO [Suspect]
     Active Substance: CIPROFLOXACIN HYDROCHLORIDE
     Indication: ABDOMINAL PAIN LOWER
     Dosage: UNK
     Dates: start: 20121204
  2. BACTRIM [Concomitant]
     Active Substance: SULFAMETHOXAZOLE\TRIMETHOPRIM
     Indication: ABDOMINAL PAIN LOWER
     Dosage: UNK
  3. AMITRIPTYLIN [Concomitant]
     Active Substance: AMITRIPTYLINE
     Indication: DEPRESSION
     Dosage: UNK
     Dates: start: 201212
  4. CIPRO [Suspect]
     Active Substance: CIPROFLOXACIN HYDROCHLORIDE
     Indication: INFECTION
     Dosage: UNK
     Dates: start: 2012
  5. HYDROCODONE [Concomitant]
     Active Substance: HYDROCODONE
     Indication: APPENDICECTOMY
     Dosage: UNK
     Dates: start: 201211
  6. METRONIDAZOLE. [Concomitant]
     Active Substance: METRONIDAZOLE
     Dosage: UNK
     Dates: start: 201212
  7. NAPROXEN. [Concomitant]
     Active Substance: NAPROXEN
     Dosage: UNK
  8. NORCO [Concomitant]
     Active Substance: ACETAMINOPHEN\HYDROCODONE BITARTRATE
     Indication: PAIN
     Dosage: 5MG-325 MG
     Route: 048
  9. CIPRO [Suspect]
     Active Substance: CIPROFLOXACIN HYDROCHLORIDE
     Indication: URINARY TRACT INFECTION
     Dosage: UNK
     Dates: start: 20100709
  10. CIPRO [Suspect]
     Active Substance: CIPROFLOXACIN HYDROCHLORIDE
     Indication: APPENDICECTOMY
     Dosage: 500 MG, BID
     Route: 048
     Dates: start: 20121130
  11. FLAGYL [Concomitant]
     Active Substance: METRONIDAZOLE\METRONIDAZOLE HYDROCHLORIDE
     Indication: APPENDICECTOMY
     Dosage: UNK
     Dates: start: 2012
  12. CIPRO [Suspect]
     Active Substance: CIPROFLOXACIN HYDROCHLORIDE
     Indication: INFECTION
     Dosage: UNK
     Dates: start: 201212
  13. CIPRO [Suspect]
     Active Substance: CIPROFLOXACIN HYDROCHLORIDE
     Indication: INFECTION
     Dosage: UNK
     Dates: start: 20121202
  14. TRAMADOL. [Concomitant]
     Active Substance: TRAMADOL
     Dosage: UNK
  15. TRIMETHOPRIM. [Concomitant]
     Active Substance: TRIMETHOPRIM
     Dosage: UNK
  16. CIPRO [Suspect]
     Active Substance: CIPROFLOXACIN HYDROCHLORIDE
     Indication: INFECTION
     Dosage: UNK
     Dates: start: 2009, end: 20121112
  17. HYDROCODONE [Concomitant]
     Active Substance: HYDROCODONE
     Indication: PAIN
  18. ZOFRAN [Concomitant]
     Active Substance: ONDANSETRON HYDROCHLORIDE
     Dosage: 4MG/5 ML
  19. SULFAMETHOXAZOLE [Concomitant]
     Active Substance: SULFAMETHOXAZOLE
     Dosage: UNK

REACTIONS (42)
  - Anxiety [None]
  - Hypoaesthesia [None]
  - Vomiting [None]
  - Dysuria [None]
  - Neuralgia [None]
  - Asthenia [None]
  - Headache [None]
  - Nausea [None]
  - Diarrhoea [None]
  - Ovarian cyst [None]
  - Pyrexia [Recovered/Resolved]
  - Muscular weakness [None]
  - Joint range of motion decreased [None]
  - Polymyalgia rheumatica [None]
  - Appendicitis [None]
  - Nervous system disorder [None]
  - Migraine [None]
  - Neuropathy peripheral [Not Recovered/Not Resolved]
  - Paraesthesia [None]
  - Tendon disorder [None]
  - Pain in jaw [None]
  - Abdominal pain [None]
  - Eye pain [None]
  - Arthralgia [None]
  - Tendon pain [None]
  - Muscle tightness [None]
  - Weight decreased [None]
  - Injury [None]
  - Adverse drug reaction [None]
  - Emotional distress [None]
  - Tinnitus [None]
  - Muscle twitching [None]
  - Pelvic pain [None]
  - Rectal tenesmus [None]
  - Musculoskeletal disorder [None]
  - Toxicity to various agents [None]
  - Intestinal prolapse [None]
  - Pain [None]
  - Abnormal faeces [None]
  - Gastrointestinal sounds abnormal [None]
  - Fatigue [None]
  - Drug hypersensitivity [None]

NARRATIVE: CASE EVENT DATE: 20121107
